FAERS Safety Report 12348297 (Version 4)
Quarter: 2016Q3

REPORT INFORMATION
  Report Type: Report from Study
  Country: US (occurrence: US)
  Receive Date: 20160509
  Receipt Date: 20160705
  Transmission Date: 20161109
  Serious: Yes (Hospitalization)
  Sender: FDA-Public Use
  Company Number: US-JNJFOC-20160505199

PATIENT
  Age: 55 Year
  Sex: Female

DRUGS (10)
  1. IMBRUVICA [Suspect]
     Active Substance: IBRUTINIB
     Indication: WALDENSTROM^S MACROGLOBULINAEMIA
     Route: 048
     Dates: start: 20160120, end: 201604
  2. IMBRUVICA [Suspect]
     Active Substance: IBRUTINIB
     Indication: WALDENSTROM^S MACROGLOBULINAEMIA
     Route: 048
     Dates: start: 2016, end: 201605
  3. MECLIZINE [Concomitant]
     Active Substance: MECLIZINE HYDROCHLORIDE
  4. WELLBUTRIN [Concomitant]
     Active Substance: BUPROPION HYDROCHLORIDE
  5. PRILOSEC [Concomitant]
     Active Substance: OMEPRAZOLE MAGNESIUM
  6. IMBRUVICA [Suspect]
     Active Substance: IBRUTINIB
     Indication: WALDENSTROM^S MACROGLOBULINAEMIA
     Route: 048
     Dates: start: 2016
  7. MACROBID [Concomitant]
     Active Substance: NITROFURANTOIN\NITROFURANTOIN MONOHYDRATE
  8. TRAMADOL. [Concomitant]
     Active Substance: TRAMADOL
  9. VENTOLIN [Concomitant]
     Active Substance: ALBUTEROL SULFATE
  10. CYANOCOBALAMIN. [Concomitant]
     Active Substance: CYANOCOBALAMIN

REACTIONS (7)
  - White blood cell count increased [Unknown]
  - Vomiting [Unknown]
  - Chest pain [Unknown]
  - Electrocardiogram abnormal [Unknown]
  - Oropharyngeal pain [Unknown]
  - Hospitalisation [Unknown]
  - Bronchitis [Unknown]

NARRATIVE: CASE EVENT DATE: 2016
